FAERS Safety Report 16495962 (Version 2)
Quarter: 2019Q3

REPORT INFORMATION
  Report Type: Report from Study
  Country: US (occurrence: US)
  Receive Date: 20190628
  Receipt Date: 20190823
  Transmission Date: 20191004
  Serious: Yes (Hospitalization)
  Sender: FDA-Public Use
  Company Number: US-ACTELION-A-NJ2019-187269

PATIENT
  Sex: Female
  Weight: 78.91 kg

DRUGS (2)
  1. OPSUMIT [Suspect]
     Active Substance: MACITENTAN
     Indication: PULMONARY ARTERIAL HYPERTENSION
     Dosage: 10 MG, QD
     Route: 048
  2. TADALAFIL. [Concomitant]
     Active Substance: TADALAFIL
     Dosage: UNK
     Dates: start: 201902

REACTIONS (6)
  - Weight increased [Unknown]
  - Condition aggravated [Unknown]
  - Hospitalisation [Unknown]
  - Dyspnoea [Unknown]
  - Palpitations [Unknown]
  - Therapy non-responder [Unknown]
